FAERS Safety Report 6729161-6 (Version None)
Quarter: 2010Q2

REPORT INFORMATION
  Report Type: 
  Country: None (occurrence: None)
  Receive Date: 20100517
  Receipt Date: 20100413
  Transmission Date: 20101027
  Serious: No
  Sender: FDA-Public Use
  Company Number: US-ABBOTT-10P-163-0638707-00

PATIENT
  Sex: Male
  Weight: 122.58 kg

DRUGS (3)
  1. SIMCOR [Suspect]
     Indication: BLOOD CHOLESTEROL INCREASED
     Dosage: 750/20 MG DAILY AT NIGHT
     Route: 048
     Dates: start: 20091001
  2. BYETTA [Concomitant]
     Indication: DRUG USE FOR UNKNOWN INDICATION
  3. JANUMET [Concomitant]
     Indication: DRUG USE FOR UNKNOWN INDICATION

REACTIONS (1)
  - FLUSHING [None]
